FAERS Safety Report 6058723-7 (Version None)
Quarter: 2009Q1

REPORT INFORMATION
  Report Type: 
  Country: None (occurrence: None)
  Receive Date: 20090130
  Receipt Date: 20090121
  Transmission Date: 20090719
  Serious: Yes (Other)
  Sender: FDA-Public Use
  Company Number: US-BAXTER-2009BH001146

PATIENT
  Age: 73 Year
  Sex: Male

DRUGS (7)
  1. HEPARIN SODIUM INJECTION [Suspect]
     Indication: THROMBOSIS PROPHYLAXIS
     Route: 040
     Dates: start: 19950501, end: 19950501
  2. HEPARIN SODIUM INJECTION [Suspect]
     Route: 042
     Dates: start: 19950501, end: 19950501
  3. HEPARIN SODIUM INJECTION [Suspect]
     Route: 040
     Dates: start: 19950501, end: 19950501
  4. MESTINONE [Concomitant]
     Indication: MYASTHENIA GRAVIS
     Route: 065
  5. VITAMINS [Concomitant]
     Indication: MYASTHENIA GRAVIS
     Route: 065
  6. SODIUM CHLORIDE [Concomitant]
     Indication: PLASMAPHERESIS
     Route: 042
  7. ALBUMIN (HUMAN) [Concomitant]
     Indication: PLASMAPHERESIS
     Route: 042

REACTIONS (2)
  - ACUTE RESPIRATORY DISTRESS SYNDROME [None]
  - HEPARIN-INDUCED THROMBOCYTOPENIA [None]
